FAERS Safety Report 8190836-6 (Version None)
Quarter: 2012Q1

REPORT INFORMATION
  Report Type: 
  Country: None (occurrence: None)
  Receive Date: 20120307
  Receipt Date: 20120302
  Transmission Date: 20120608
  Serious: Yes (Hospitalization)
  Sender: FDA-Public Use
  Company Number: US-MERCK-1201USA03759

PATIENT
  Age: 29 Year
  Sex: Male

DRUGS (1)
  1. PROPECIA [Suspect]
     Indication: ALOPECIA
     Route: 048
     Dates: start: 20110526, end: 20111028

REACTIONS (27)
  - ADVERSE EVENT [None]
  - PENIS DISORDER [None]
  - FATIGUE [None]
  - MEMORY IMPAIRMENT [None]
  - MENTAL IMPAIRMENT [None]
  - SEMEN VOLUME DECREASED [None]
  - ERECTILE DYSFUNCTION [None]
  - HAIR GROWTH ABNORMAL [None]
  - DEPRESSED MOOD [None]
  - MUSCLE TWITCHING [None]
  - SEXUAL DYSFUNCTION [None]
  - BLUNTED AFFECT [None]
  - BODY TEMPERATURE DECREASED [None]
  - SEMEN DISCOLOURATION [None]
  - LIBIDO DECREASED [None]
  - SPEECH DISORDER [None]
  - VARICOSE VEIN [None]
  - DEPRESSION [None]
  - LOSS OF LIBIDO [None]
  - TESTICULAR DISORDER [None]
  - PANIC ATTACK [None]
  - INSOMNIA [None]
  - ANHEDONIA [None]
  - MUSCLE ATROPHY [None]
  - TESTICULAR PAIN [None]
  - HAIR COLOUR CHANGES [None]
  - POOR QUALITY SLEEP [None]
